FAERS Safety Report 11570100 (Version 7)
Quarter: 2016Q3

REPORT INFORMATION
  Report Type: Spontaneous
  Country: US (occurrence: US)
  Receive Date: 20150929
  Receipt Date: 20160815
  Transmission Date: 20161109
  Serious: Yes (Hospitalization, Other)
  Sender: FDA-Public Use
  Company Number: US-PFIZER INC-2015320750

PATIENT
  Age: 75 Year
  Sex: Female
  Weight: 77 kg

DRUGS (4)
  1. XELJANZ [Suspect]
     Active Substance: TOFACITINIB CITRATE
     Dosage: 5 MG, UNK
  2. FENTANYL. [Concomitant]
     Active Substance: FENTANYL
     Indication: SPINAL OPERATION
     Dosage: AT 17 POINT SOMETHING MCG TO GO INTO HER SPINE ALL TIME
     Dates: start: 201011
  3. XELJANZ [Suspect]
     Active Substance: TOFACITINIB CITRATE
     Indication: RHEUMATOID ARTHRITIS
     Dosage: 5 MG, 2X/DAY (ONE IN MORNING AND ONE IN EVENING)
     Dates: start: 2015
  4. XELJANZ [Suspect]
     Active Substance: TOFACITINIB CITRATE
     Dosage: UNK
     Dates: start: 20160205

REACTIONS (8)
  - Paranasal sinus hypersecretion [Not Recovered/Not Resolved]
  - Pneumonia [Unknown]
  - Ear infection [Not Recovered/Not Resolved]
  - Abdominal discomfort [Unknown]
  - Cough [Not Recovered/Not Resolved]
  - Chronic obstructive pulmonary disease [Unknown]
  - Bronchitis [Not Recovered/Not Resolved]
  - Osteoarthritis [Unknown]

NARRATIVE: CASE EVENT DATE: 2015
